FAERS Safety Report 6443361-4 (Version None)
Quarter: 2009Q4

REPORT INFORMATION
  Report Type: 
  Country: None (occurrence: None)
  Receive Date: 20091117
  Receipt Date: 20091110
  Transmission Date: 20100525
  Serious: Yes (Other)
  Sender: FDA-Public Use
  Company Number: US-MERCK-0909USA03491

PATIENT
  Age: 77 Year
  Sex: Female

DRUGS (1)
  1. FOSAMAX [Suspect]
     Route: 048

REACTIONS (4)
  - ARTHROPATHY [None]
  - GAIT DISTURBANCE [None]
  - PAIN [None]
  - SPINAL FRACTURE [None]
